FAERS Safety Report 5331305-8 (Version None)
Quarter: 2007Q2

REPORT INFORMATION
  Report Type: 
  Country: None (occurrence: None)
  Receive Date: 20070301
  Receipt Date: 20060612
  Transmission Date: 20071010
  Serious: Yes (Other)
  Sender: FDA-Public Use
  Company Number: 2617

PATIENT
  Age: 51 Year
  Sex: Female
  Weight: 84.8226 kg

DRUGS (2)
  1. ISOTRETINOIN [Suspect]
     Indication: ACNE
     Dosage: 40 MG, PO, BID
     Route: 048
     Dates: start: 20060202, end: 20060313
  2. LOVASTATIN [Concomitant]

REACTIONS (1)
  - ISCHAEMIC STROKE [None]
